FAERS Safety Report 9055914 (Version 8)
Quarter: 2013Q4

REPORT INFORMATION
  Report Type: Report from Study
  Country: US (occurrence: US)
  Receive Date: 20130206
  Receipt Date: 20131029
  Transmission Date: 20140711
  Serious: Yes (Hospitalization)
  Sender: FDA-Public Use
  Company Number: US-B.I. PHARMACEUTICALS,INC./RIDGEFIELD-2013-RU-00115BP

PATIENT
  Age: 64 Year
  Sex: Female
  Weight: 51.6 kg

DRUGS (8)
  1. BI 1744+TIOTROPIUM [Suspect]
     Indication: CHRONIC OBSTRUCTIVE PULMONARY DISEASE
     Dosage: FIXED DOSE COMBINATION TIOTROPIUM 5.0 MCG + OLODATEROL 5.0 MCG
     Route: 055
     Dates: start: 20120423
  2. TRIAL PROCEDURE [Suspect]
     Indication: CHRONIC OBSTRUCTIVE PULMONARY DISEASE
  3. MAGNESIUM [Concomitant]
     Indication: MEDICAL DIET
     Dosage: 1 UNK
     Route: 048
  4. MULTIVITAMIN [Concomitant]
     Indication: MEDICAL DIET
     Dosage: 1 UNK
     Route: 048
  5. VITAMIN D [Concomitant]
     Indication: MEDICAL DIET
     Dosage: 1 UNK
     Route: 048
  6. FISH OIL [Concomitant]
     Indication: MEDICAL DIET
     Dosage: 1 UNK
     Route: 048
  7. ASPIRIN [Concomitant]
     Indication: PROPHYLAXIS
     Dosage: 81 MG
     Route: 048
  8. IBUPROFEN [Concomitant]
     Indication: MYALGIA
     Dosage: 200 MG
     Route: 048

REACTIONS (10)
  - Pneumonia [Recovered/Resolved]
  - Nasal congestion [Recovered/Resolved]
  - Chronic obstructive pulmonary disease [Recovered/Resolved]
  - Hypercalcaemia [Recovered/Resolved]
  - Hyperkalaemia [Recovered/Resolved]
  - Hypomagnesaemia [Recovered/Resolved]
  - Anaemia [Recovered/Resolved]
  - Leukocytosis [Recovered/Resolved]
  - Diarrhoea [Recovered/Resolved]
  - Abdominal pain upper [Recovered/Resolved]
